FAERS Safety Report 9824144 (Version 2)
Quarter: 2014Q1

REPORT INFORMATION
  Report Type: Spontaneous
  Country: US (occurrence: US)
  Receive Date: 20140116
  Receipt Date: 20140210
  Transmission Date: 20141002
  Serious: No
  Sender: FDA-Public Use
  Company Number: US-GLAXOSMITHKLINE-A1053967A

PATIENT
  Sex: Male

DRUGS (16)
  1. ZOFRAN [Suspect]
     Indication: NAUSEA
     Dosage: 8MG UNKNOWN
     Route: 065
     Dates: start: 201308
  2. EMEND [Suspect]
  3. REGLAN [Suspect]
  4. ASPIRIN [Concomitant]
  5. CITALOPRAM [Concomitant]
  6. FOLIC ACID [Concomitant]
  7. LAMOTRIGINE [Concomitant]
  8. MEGACE [Concomitant]
  9. METOPROLOL [Concomitant]
  10. MIRTAZAPINE [Concomitant]
  11. MUCOSAL [Concomitant]
  12. PREDNISONE [Concomitant]
  13. RAMIPRIL [Concomitant]
  14. SIMVASTATIN [Concomitant]
  15. SUNITINIB [Concomitant]
  16. TAMSULOSIN [Concomitant]

REACTIONS (1)
  - Drug ineffective [Unknown]
